FAERS Safety Report 21605140 (Version 1)
Quarter: 2022Q4

REPORT INFORMATION
  Report Type: Spontaneous
  Country: US (occurrence: None)
  Receive Date: 20221116
  Receipt Date: 20221116
  Transmission Date: 20230112
  Serious: Yes (Death)
  Sender: FDA-Public Use
  Company Number: None

PATIENT
  Age: 44 Year
  Sex: Male
  Weight: 61.2 kg

DRUGS (7)
  1. HUMIRA [Suspect]
     Active Substance: ADALIMUMAB
     Indication: Crohn^s disease
  2. ZINC [Concomitant]
     Active Substance: ZINC
  3. ABREVA [Concomitant]
     Active Substance: DOCOSANOL
  4. hc cream [Concomitant]
  5. sudagest [Concomitant]
  6. lotrimen [Concomitant]
  7. TYLENOL [Concomitant]
     Active Substance: ACETAMINOPHEN

REACTIONS (5)
  - Drug ineffective [None]
  - Rectal haemorrhage [None]
  - Transfusion [None]
  - Biopsy bone marrow abnormal [None]
  - Neoplasm malignant [None]

NARRATIVE: CASE EVENT DATE: 20220118
